FAERS Safety Report 13839167 (Version 1)
Quarter: 2017Q3

REPORT INFORMATION
  Report Type: Spontaneous
  Country: US (occurrence: US)
  Receive Date: 20170806
  Receipt Date: 20170806
  Transmission Date: 20171127
  Serious: No
  Sender: FDA-Public Use
  Company Number: None

PATIENT
  Age: 55 Year
  Sex: Female
  Weight: 63 kg

DRUGS (8)
  1. ONE-A-DAY WOMEN^S OVER 50 [Concomitant]
  2. GLUCOSAMINE [Concomitant]
     Active Substance: GLUCOSAMINE
  3. TRAZEDONE [Concomitant]
  4. VITAMIN D [Concomitant]
     Active Substance: CHOLECALCIFEROL
  5. MAGNESIUM [Concomitant]
     Active Substance: MAGNESIUM
  6. OMEPRAZOLE. [Concomitant]
     Active Substance: OMEPRAZOLE
  7. VITAMIN B12 [Concomitant]
     Active Substance: CYANOCOBALAMIN
  8. VENLAFAXINE HYDROCHLORIDE EXTENDED RELEASE CAPSULES, 37.5 MG [Suspect]
     Active Substance: VENLAFAXINE HYDROCHLORIDE
     Indication: DEPRESSION
     Dosage: ?          QUANTITY:90 CAPSULE(S);?
     Route: 048
     Dates: start: 20170701

REACTIONS (5)
  - Feeling jittery [None]
  - Affective disorder [None]
  - Dizziness [None]
  - Disturbance in attention [None]
  - Anxiety [None]

NARRATIVE: CASE EVENT DATE: 20170708
